FAERS Safety Report 9286817 (Version 2)
Quarter: 2013Q2

REPORT INFORMATION
  Report Type: Spontaneous
  Country: US (occurrence: US)
  Receive Date: 20130513
  Receipt Date: 20130530
  Transmission Date: 20140414
  Serious: Yes (Hospitalization)
  Sender: FDA-Public Use
  Company Number: US-ALEXION PHARMACEUTICALS INC.-A201301026

PATIENT
  Sex: Female
  Weight: 98 kg

DRUGS (11)
  1. SOLIRIS 300MG [Suspect]
     Indication: HAEMOLYTIC URAEMIC SYNDROME
     Dosage: 900 MG, QW
     Route: 042
     Dates: start: 20130412, end: 20130503
  2. SOLIRIS 300MG [Suspect]
     Dosage: 1200 MG, UNK
     Route: 042
     Dates: start: 20130510
  3. AMPICILLIN [Concomitant]
     Dosage: 500 MG, TID
     Route: 042
     Dates: start: 20130411, end: 20130420
  4. MENINGOCOCCAL VACCINE [Concomitant]
     Indication: IMMUNISATION
     Dosage: UNK
     Dates: start: 20130418, end: 20130418
  5. RENAGEL [Concomitant]
     Dosage: UNK
  6. CLONIDINE [Concomitant]
     Dosage: UNK
  7. LABETALOL [Concomitant]
     Dosage: 300 MG, TID
  8. NIFEDIPINE [Concomitant]
     Dosage: 30 MG, BID
  9. TYLENOL [Concomitant]
     Dosage: UNK, PRN
  10. PEPCID [Concomitant]
     Dosage: 20 MG, QD
  11. PREDNISONE [Concomitant]
     Dosage: 120 MG, QD

REACTIONS (2)
  - Cholecystitis acute [Recovered/Resolved]
  - Blood lactate dehydrogenase increased [Unknown]
